FAERS Safety Report 8114912-9 (Version None)
Quarter: 2012Q1

REPORT INFORMATION
  Report Type: 
  Country: None (occurrence: None)
  Receive Date: 20120206
  Receipt Date: 20120125
  Transmission Date: 20120608
  Serious: Yes (Hospitalization)
  Sender: FDA-Public Use
  Company Number: SE-JNJFOC-20120111253

PATIENT
  Age: 54 Year
  Sex: Male

DRUGS (2)
  1. PREDNISOLONE [Concomitant]
     Route: 065
  2. REMICADE [Suspect]
     Indication: CROHN'S DISEASE
     Route: 042
     Dates: start: 20091101, end: 20100105

REACTIONS (2)
  - ALVEOLITIS [None]
  - PNEUMOTHORAX [None]
